FAERS Safety Report 8887405 (Version 1)
Quarter: 2012Q4

REPORT INFORMATION
  Report Type: Report from Study
  Country: GB (occurrence: GB)
  Receive Date: 20121105
  Receipt Date: 20121105
  Transmission Date: 20130627
  Serious: Yes (Life-Threatening, Hospitalization)
  Sender: FDA-Public Use
  Company Number: GB-VERTEX PHARMACEUTICAL INC.-2012-021760

PATIENT
  Age: 48 Year
  Sex: Male

DRUGS (3)
  1. VX-950 [Suspect]
     Indication: HEPATITIS C
     Dosage: 750 mg, tid
     Route: 048
     Dates: start: 20120507, end: 20120730
  2. PEG INTERFERON [Suspect]
     Indication: HEPATITIS C
     Dosage: UNK
     Route: 058
     Dates: start: 20120507
  3. RIBAVIRIN [Suspect]
     Indication: HEPATITIS C
     Dosage: UNK
     Route: 048
     Dates: start: 20120507

REACTIONS (2)
  - Myocardial infarction [Unknown]
  - Fatigue [None]
